FAERS Safety Report 22259489 (Version 3)
Quarter: 2024Q2

REPORT INFORMATION
  Report Type: Spontaneous
  Country: IN (occurrence: IN)
  Receive Date: 20230427
  Receipt Date: 20240403
  Transmission Date: 20240715
  Serious: Yes (Death, Hospitalization)
  Sender: FDA-Public Use
  Company Number: IN-PFIZER INC-202200813626

PATIENT
  Age: 65 Year
  Sex: Female

DRUGS (1)
  1. DACOMITINIB [Suspect]
     Active Substance: DACOMITINIB
     Dosage: 30 MG, ONCE DAILY
     Route: 048
     Dates: start: 20210917

REACTIONS (7)
  - Death [Fatal]
  - General physical health deterioration [Unknown]
  - Chest discomfort [Unknown]
  - Headache [Unknown]
  - Mouth ulceration [Unknown]
  - Dysstasia [Unknown]
  - Somnolence [Unknown]

NARRATIVE: CASE EVENT DATE: 20220101
